FAERS Safety Report 4655878-3 (Version None)
Quarter: 2005Q2

REPORT INFORMATION
  Report Type: 
  Country: None (occurrence: None)
  Receive Date: 20050505
  Receipt Date: 20050422
  Transmission Date: 20051028
  Serious: Yes (Death)
  Sender: FDA-Public Use
  Company Number: 2005061411

PATIENT
  Age: 61 Year
  Sex: Female
  Weight: 88 kg

DRUGS (2)
  1. CELEBREX [Suspect]
     Indication: POLYMYALGIA RHEUMATICA
     Dosage: 200 MG (200 MG, 1 IN 1 D), ORAL
     Route: 048
     Dates: start: 20041101, end: 20041201
  2. BETA BLOCKING AGENTS (BETA BLOCKING AGENTS) [Concomitant]

REACTIONS (1)
  - CARDIAC ARREST [None]
